FAERS Safety Report 13720437 (Version 3)
Quarter: 2017Q4

REPORT INFORMATION
  Report Type: Spontaneous
  Country: DE (occurrence: DE)
  Receive Date: 20170706
  Receipt Date: 20171030
  Transmission Date: 20180320
  Serious: No
  Sender: FDA-Public Use
  Company Number: DE-LUPIN PHARMACEUTICALS INC.-2017-03462

PATIENT
  Age: 48 Year
  Sex: Female
  Weight: 50 kg

DRUGS (2)
  1. DESOGESTREL AND ETHINYL ESTRADIOL [Suspect]
     Active Substance: DESOGESTREL\ETHINYL ESTRADIOL
     Indication: CONTRACEPTION
     Dosage: 1 DF, QD
     Route: 048
     Dates: start: 20170522, end: 20170611
  2. L-THYROXIN RATIOPHARM [Concomitant]
     Indication: PRODUCT USED FOR UNKNOWN INDICATION
     Dosage: UNK
     Route: 065

REACTIONS (9)
  - Ocular discomfort [Recovering/Resolving]
  - Pain in extremity [Recovering/Resolving]
  - Malaise [Recovering/Resolving]
  - Palpitations [Recovering/Resolving]
  - Dizziness [Recovering/Resolving]
  - Nausea [Recovering/Resolving]
  - Restlessness [Recovering/Resolving]
  - Inflammatory marker increased [Recovering/Resolving]
  - Anxiety [Recovering/Resolving]

NARRATIVE: CASE EVENT DATE: 20170526
